FAERS Safety Report 16392558 (Version 5)
Quarter: 2020Q1

REPORT INFORMATION
  Report Type: Report from Study
  Country: US (occurrence: US)
  Receive Date: 20190605
  Receipt Date: 20200311
  Transmission Date: 20200409
  Serious: No
  Sender: FDA-Public Use
  Company Number: PHEH2019US023236

PATIENT
  Sex: Female

DRUGS (1)
  1. GILENYA [Suspect]
     Active Substance: FINGOLIMOD HYDROCHLORIDE
     Indication: MULTIPLE SCLEROSIS
     Dosage: 0.5 MG, QD
     Route: 048
     Dates: start: 20190517

REACTIONS (11)
  - White blood cell count decreased [Unknown]
  - Visual impairment [Unknown]
  - Dysphagia [Recovering/Resolving]
  - Balance disorder [Unknown]
  - Flatulence [Unknown]
  - Lower limb fracture [Unknown]
  - Oropharyngeal pain [Recovering/Resolving]
  - Feeling abnormal [Unknown]
  - Arthralgia [Not Recovered/Not Resolved]
  - Vision blurred [Unknown]
  - Aphasia [Unknown]
